FAERS Safety Report 19676849 (Version 1)
Quarter: 2021Q3

REPORT INFORMATION
  Report Type: Spontaneous
  Country: US (occurrence: US)
  Receive Date: 20210809
  Receipt Date: 20210809
  Transmission Date: 20211014
  Serious: Yes (Hospitalization)
  Sender: FDA-Public Use
  Company Number: US-PFIZER INC-202100964283

PATIENT
  Sex: Male

DRUGS (1)
  1. ETHOSUXIMIDE. [Suspect]
     Active Substance: ETHOSUXIMIDE
     Dosage: 250 MG

REACTIONS (2)
  - Therapeutic product effect decreased [Unknown]
  - Seizure [Unknown]
